FAERS Safety Report 18515202 (Version 1)
Quarter: 2020Q4

REPORT INFORMATION
  Report Type: Spontaneous
  Country: CH (occurrence: CH)
  Receive Date: 20201118
  Receipt Date: 20201118
  Transmission Date: 20210114
  Serious: Yes (Other)
  Sender: FDA-Public Use
  Company Number: CH-009507513-2011CHE008972

PATIENT
  Age: 25 Year
  Sex: Female

DRUGS (2)
  1. CASPOFUNGIN ACETATE. [Suspect]
     Active Substance: CASPOFUNGIN ACETATE
     Indication: CANDIDA INFECTION
     Dosage: SINCE 47 DAYS BEFORE CANDIDEMIC EPISODE
  2. ANIDULAFUNGIN [Concomitant]
     Active Substance: ANIDULAFUNGIN
     Indication: CANDIDA INFECTION
     Dosage: SINCE 47 DAYS BEFORE CANDIDEMIC EPISODE

REACTIONS (1)
  - Pathogen resistance [Unknown]
